FAERS Safety Report 6064654-9 (Version None)
Quarter: 2009Q1

REPORT INFORMATION
  Report Type: 
  Country: None (occurrence: None)
  Receive Date: 20090204
  Receipt Date: 20080421
  Transmission Date: 20090719
  Serious: No
  Sender: FDA-Public Use
  Company Number: A0714952A

PATIENT
  Age: 53 Year
  Sex: Female

DRUGS (2)
  1. ARIXTRA [Suspect]
     Dosage: 1INJ PER DAY
     Route: 058
     Dates: start: 20080120
  2. OXYCODONE HCL [Concomitant]

REACTIONS (3)
  - CONTUSION [None]
  - PAIN [None]
  - PRODUCT QUALITY ISSUE [None]
